FAERS Safety Report 5218756-7 (Version None)
Quarter: 2007Q1

REPORT INFORMATION
  Report Type: 
  Country: None (occurrence: None)
  Receive Date: 20070123
  Receipt Date: 20070112
  Transmission Date: 20070707
  Serious: Yes (Hospitalization)
  Sender: FDA-Public Use
  Company Number: 2007AL000266

PATIENT
  Age: 70 Year
  Sex: Female

DRUGS (2)
  1. AMANTADINE HYDROCHLORIDE [Suspect]
     Dosage: 150 MG; QD;PO
     Route: 048
  2. LEVODOPA [Concomitant]

REACTIONS (14)
  - COMMUNICATION DISORDER [None]
  - COORDINATION ABNORMAL [None]
  - DISTURBANCE IN ATTENTION [None]
  - DRUG TOXICITY [None]
  - GAIT DISTURBANCE [None]
  - HAEMODIALYSIS [None]
  - HALLUCINATION, VISUAL [None]
  - MEMORY IMPAIRMENT [None]
  - MYOCLONUS [None]
  - NERVOUS SYSTEM DISORDER [None]
  - PYREXIA [None]
  - REFLEXES ABNORMAL [None]
  - RESTLESSNESS [None]
  - SOMNOLENCE [None]
